FAERS Safety Report 11016073 (Version 2)
Quarter: 2015Q2

REPORT INFORMATION
  Report Type: Spontaneous
  Country: US (occurrence: US)
  Receive Date: 20150412
  Receipt Date: 20150525
  Transmission Date: 20150821
  Serious: No
  Sender: FDA-Public Use
  Company Number: US-JNJFOC-20140115178

PATIENT
  Age: 33 Year
  Sex: Male

DRUGS (1)
  1. SIMPONI [Suspect]
     Active Substance: GOLIMUMAB
     Indication: COLITIS ULCERATIVE
     Route: 058
     Dates: start: 20131119, end: 20140123

REACTIONS (6)
  - Haemorrhage [Not Recovered/Not Resolved]
  - Product use issue [Unknown]
  - Pruritus [Not Recovered/Not Resolved]
  - Skin disorder [Not Recovered/Not Resolved]
  - Rash generalised [Recovered/Resolved]
  - Skin fissures [Recovered/Resolved]

NARRATIVE: CASE EVENT DATE: 2013
